FAERS Safety Report 7927656-0 (Version None)
Quarter: 2011Q4

REPORT INFORMATION
  Report Type: 
  Country: None (occurrence: None)
  Receive Date: 20111118
  Receipt Date: 20111107
  Transmission Date: 20120403
  Serious: Yes (Hospitalization)
  Sender: FDA-Public Use
  Company Number: US-ROCHE-207190

PATIENT
  Sex: Female
  Weight: 60 kg

DRUGS (9)
  1. MULTI-VITAMINS [Concomitant]
     Route: 065
  2. POTASSIUM CHLORIDE [Concomitant]
     Route: 065
  3. LASIX [Concomitant]
     Route: 065
  4. HERCEPTIN [Suspect]
     Indication: OVARIAN CANCER RECURRENT
     Route: 042
     Dates: start: 19971020, end: 19990304
  5. HERCEPTIN [Suspect]
     Route: 042
     Dates: start: 19990409, end: 19990416
  6. LIPITOR [Concomitant]
     Route: 065
  7. HERCEPTIN [Suspect]
     Route: 042
  8. CALCIUM [Concomitant]
     Route: 065
  9. GLUCOTROL [Concomitant]
     Route: 065

REACTIONS (3)
  - PROTEINURIA [None]
  - NEPHROTIC SYNDROME [None]
  - GLOMERULONEPHRITIS MEMBRANOUS [None]
